FAERS Safety Report 9344028 (Version 2)
Quarter: 2013Q3

REPORT INFORMATION
  Report Type: Spontaneous
  Country: US (occurrence: US)
  Receive Date: 20130612
  Receipt Date: 20130719
  Transmission Date: 20140515
  Serious: Yes (Death)
  Sender: FDA-Public Use
  Company Number: US-BRISTOL-MYERS SQUIBB COMPANY-18995357

PATIENT
  Age: 41 Year
  Sex: Female

DRUGS (1)
  1. BARACLUDE [Suspect]
     Indication: LIVER TRANSPLANT

REACTIONS (2)
  - Death [Fatal]
  - Treatment noncompliance [Unknown]
